FAERS Safety Report 10721167 (Version 1)
Quarter: 2015Q1

REPORT INFORMATION
  Report Type: Spontaneous
  Country: US (occurrence: US)
  Receive Date: 20150119
  Receipt Date: 20150119
  Transmission Date: 20150721
  Serious: Yes (Hospitalization)
  Sender: FDA-Public Use
  Company Number: US-UNITED THERAPEUTICS-UNT-2014-008463

PATIENT
  Age: 87 Year
  Sex: Female
  Weight: 60 kg

DRUGS (3)
  1. OPSUMIT [Concomitant]
     Active Substance: MACITENTAN
     Indication: PRODUCT USED FOR UNKNOWN INDICATION
  2. TYVASO [Suspect]
     Active Substance: TREPROSTINIL
     Indication: COR PULMONALE CHRONIC
     Dosage: 36-42 MICROGRAMS, QID
     Dates: start: 20120809
  3. TYVASO [Suspect]
     Active Substance: TREPROSTINIL
     Indication: PULMONARY HYPERTENSION

REACTIONS (5)
  - Night sweats [Unknown]
  - Hyperhidrosis [Unknown]
  - Chills [Unknown]
  - Feeling cold [Unknown]
  - Pneumonia [Unknown]

NARRATIVE: CASE EVENT DATE: 20140831
